FAERS Safety Report 10431652 (Version 1)
Quarter: 2014Q3

REPORT INFORMATION
  Report Type: Spontaneous
  Country: JP (occurrence: None)
  Receive Date: 20140903
  Receipt Date: 20140903
  Transmission Date: 20150326
  Serious: Yes (Death, Other)
  Sender: FDA-Public Use
  Company Number: INT_00397_2014

PATIENT
  Age: 72 Year
  Sex: Male

DRUGS (3)
  1. PACLITAXEL. [Suspect]
     Active Substance: PACLITAXEL
     Indication: SQUAMOUS CELL CARCINOMA
  2. CARBOPLATIN (CARBOPLATIN) [Suspect]
     Active Substance: CARBOPLATIN
     Indication: SQUAMOUS CELL CARCINOMA
     Dosage: THE CURVE OF 5 ON DAY 1 (CYCLE 1), (AREA UNDER THE CURVE OF 3.5 ON DAY 1, REDUCED BY 30% (CYCLE 2
  3. HYDROCORTISONE (HYDROCORTISONE) [Suspect]
     Active Substance: HYDROCORTISONE
     Indication: STEROID THERAPY

REACTIONS (9)
  - Haemodynamic instability [None]
  - Hypotension [None]
  - Pancytopenia [None]
  - Febrile neutropenia [None]
  - Necrotising colitis [None]
  - Septic shock [None]
  - Abdominal distension [None]
  - Neutropenia [None]
  - Candida test positive [None]
